FAERS Safety Report 6807889-7 (Version None)
Quarter: 2010Q2

REPORT INFORMATION
  Report Type: 
  Country: None (occurrence: None)
  Receive Date: 20100629
  Receipt Date: 20090314
  Transmission Date: 20101027
  Serious: Yes (Other)
  Sender: FDA-Public Use
  Company Number: US-PFIZER INC-2009162618

PATIENT
  Sex: Male
  Weight: 78.925 kg

DRUGS (4)
  1. TIKOSYN [Suspect]
     Indication: VENTRICULAR ARRHYTHMIA
     Dosage: 500 UG, 2X/DAY
     Route: 048
     Dates: start: 20090126
  2. METOPROLOL TARTRATE [Concomitant]
     Dosage: UNK
     Route: 048
  3. CELEXA [Concomitant]
     Dosage: UNK
     Route: 048
  4. LOVENOX [Concomitant]
     Dosage: UNK
     Route: 048

REACTIONS (1)
  - VENTRICULAR TACHYCARDIA [None]
